FAERS Safety Report 24558215 (Version 3)
Quarter: 2024Q4

REPORT INFORMATION
  Report Type: Spontaneous
  Country: JP (occurrence: JP)
  Receive Date: 20241028
  Receipt Date: 20241108
  Transmission Date: 20250114
  Serious: Yes (Death)
  Sender: SANOFI AVENTIS
  Company Number: JP-SAKK-2024SA308205AA

PATIENT

DRUGS (1)
  1. SARCLISA [Suspect]
     Active Substance: ISATUXIMAB-IRFC
     Indication: Plasma cell myeloma
     Dosage: UNK
     Route: 041
     Dates: start: 202407, end: 202407

REACTIONS (1)
  - Disease progression [Fatal]
